FAERS Safety Report 18598204 (Version 2)
Quarter: 2020Q4

REPORT INFORMATION
  Report Type: Report from Study
  Country: None (occurrence: GR)
  Receive Date: 20201209
  Receipt Date: 20201217
  Transmission Date: 20210114
  Serious: Yes (Hospitalization)
  Sender: FDA-Public Use
  Company Number: GR-ABBVIE-20K-066-3671007-00

PATIENT
  Age: 81 Year
  Sex: Male
  Weight: 80 kg

DRUGS (4)
  1. MADOPAR [Concomitant]
     Active Substance: BENSERAZIDE HYDROCHLORIDE\LEVODOPA
     Indication: PARKINSON^S DISEASE
     Route: 048
     Dates: start: 20200914
  2. DUODOPA [Suspect]
     Active Substance: CARBIDOPA\LEVODOPA
  3. REMERON [Concomitant]
     Active Substance: MIRTAZAPINE
     Indication: PRODUCT USED FOR UNKNOWN INDICATION
     Route: 048
  4. DUODOPA [Suspect]
     Active Substance: CARBIDOPA\LEVODOPA
     Indication: PARKINSON^S DISEASE
     Dosage: MD: 16.0 ML; CONTINUOUS RATE: 3.3 ML/H; ED: 1.5 ML
     Route: 050
     Dates: start: 20200616, end: 20200914

REACTIONS (5)
  - Discoloured vomit [Recovered/Resolved]
  - Pyrexia [Recovered/Resolved]
  - Intestinal mass [Unknown]
  - Embedded device [Unknown]
  - Leukocytosis [Recovered/Resolved]

NARRATIVE: CASE EVENT DATE: 2020
